FAERS Safety Report 5100032-4 (Version None)
Quarter: 2006Q3

REPORT INFORMATION
  Report Type: 
  Country: None (occurrence: None)
  Receive Date: 20060908
  Receipt Date: 20060828
  Transmission Date: 20061208
  Serious: Yes (Life-Threatening, Hospitalization)
  Sender: FDA-Public Use
  Company Number: IT-SANOFI-SYNTHELABO-D01200603872

PATIENT
  Sex: Female
  Weight: 147.8 kg

DRUGS (25)
  1. OMEPRAZOLE [Concomitant]
  2. DEXAMETHASONE TAB [Concomitant]
  3. SUCRALFATE [Concomitant]
     Dosage: UNK
  4. METOCLOPRAMIDE [Concomitant]
     Dosage: UNK
  5. AVE8062 [Suspect]
     Indication: NEOPLASM
     Route: 042
     Dates: start: 20060802, end: 20060802
  6. FUROSEMIDE [Concomitant]
  7. OXALIPLATIN [Suspect]
     Route: 042
     Dates: start: 20060802, end: 20060802
  8. KLACID [Concomitant]
     Dosage: UNK
     Dates: start: 20060814, end: 20060814
  9. ALBUMIN [Concomitant]
     Dosage: UNK
     Route: 042
     Dates: start: 20060822, end: 20060822
  10. ALBUMIN [Concomitant]
     Dosage: UNK
     Dates: start: 20060825, end: 20060825
  11. TINSET [Concomitant]
     Dosage: UNK
     Dates: start: 20060824, end: 20060824
  12. RANITIDINE [Concomitant]
     Dosage: UNK
     Route: 042
     Dates: start: 20060821, end: 20060827
  13. LENTOKALIUM [Concomitant]
     Dosage: UNK
     Dates: start: 20060818, end: 20060820
  14. KETOROLAC TROMETHAMINE [Concomitant]
     Dosage: UNK
     Dates: start: 20060821, end: 20060827
  15. MORPHINE [Concomitant]
     Dosage: UNK
     Route: 058
     Dates: start: 20060821, end: 20060823
  16. AUGMENTIN [Concomitant]
     Dosage: UNK
     Route: 042
     Dates: start: 20060821, end: 20060821
  17. SEVORANE [Concomitant]
     Dosage: UNK
     Dates: start: 20060821, end: 20060821
  18. DIPRIVAN [Concomitant]
     Dosage: UNK
     Dates: start: 20060821, end: 20060821
  19. TRACRIUM [Concomitant]
     Dosage: UNK
     Dates: start: 20060821, end: 20060821
  20. FENTANEST [Concomitant]
     Dosage: UNK
     Dates: start: 20060821, end: 20060821
  21. GRANISETRON [Concomitant]
     Dosage: UNK
     Dates: start: 20060802, end: 20060802
  22. POZASE [Concomitant]
     Dosage: UNK
     Dates: start: 20060802
  23. SOLU-CORTEF [Concomitant]
     Dosage: UNK
     Route: 042
     Dates: start: 20060802, end: 20060802
  24. SOLDESAM [Concomitant]
     Dosage: UNK
     Route: 042
     Dates: start: 20060802, end: 20060802
  25. SOLDESAM [Concomitant]
     Dates: start: 20060814, end: 20060817

REACTIONS (6)
  - AKINESIA [None]
  - CARDIAC MURMUR [None]
  - MALIGNANT NEOPLASM PROGRESSION [None]
  - MYOCARDIAL INFARCTION [None]
  - SINUS TACHYCARDIA [None]
  - VENTRICULAR HYPOKINESIA [None]
